FAERS Safety Report 24406224 (Version 3)
Quarter: 2025Q1

REPORT INFORMATION
  Report Type: Spontaneous
  Country: FR (occurrence: FR)
  Receive Date: 20241007
  Receipt Date: 20250212
  Transmission Date: 20250409
  Serious: Yes (Death, Hospitalization)
  Sender: PFIZER
  Company Number: FR-PFIZER INC-PV202400115336

PATIENT
  Age: 50 Year
  Sex: Female
  Weight: 71 kg

DRUGS (3)
  1. OXBRYTA [Suspect]
     Active Substance: VOXELOTOR
     Indication: Haemolytic anaemia
     Dosage: 1500 MG, DAILY
     Route: 048
     Dates: start: 20240323
  2. SIKLOS [Concomitant]
     Active Substance: HYDROXYUREA
     Indication: Sickle cell disease
     Dosage: 1300 MG (ONE 1000 MG TAB AND THREE 100 MG TABS), DAILY
  3. FOLIC ACID [Concomitant]
     Active Substance: FOLIC ACID
     Indication: Anaemia
     Dosage: 5 MG, DAILY

REACTIONS (3)
  - Meningitis pneumococcal [Fatal]
  - Bacteraemia [Fatal]
  - White blood cell count decreased [Unknown]

NARRATIVE: CASE EVENT DATE: 20240612
